FAERS Safety Report 15562490 (Version 2)
Quarter: 2018Q4

REPORT INFORMATION
  Report Type: Spontaneous
  Country: US (occurrence: US)
  Receive Date: 20181029
  Receipt Date: 20181104
  Transmission Date: 20190205
  Serious: Yes (Hospitalization)
  Sender: FDA-Public Use
  Company Number: US-PFIZER INC-2018435497

PATIENT
  Age: 59 Year
  Sex: Female
  Weight: 87.75 kg

DRUGS (2)
  1. LYRICA [Suspect]
     Active Substance: PREGABALIN
     Indication: DIABETIC NEUROPATHY
     Dosage: 100 MG, 3X/DAY (300MG DAILY)
     Route: 048
     Dates: start: 2008
  2. LYRICA [Suspect]
     Active Substance: PREGABALIN
     Indication: NEUROPATHY PERIPHERAL

REACTIONS (10)
  - Pain in extremity [Not Recovered/Not Resolved]
  - Decreased appetite [Unknown]
  - Condition aggravated [Not Recovered/Not Resolved]
  - Asthenia [Unknown]
  - Vitamin B6 increased [Unknown]
  - Fatigue [Unknown]
  - Diabetic foot infection [Unknown]
  - Diabetic foot [Unknown]
  - Insomnia [Unknown]
  - Gastric pH decreased [Recovering/Resolving]

NARRATIVE: CASE EVENT DATE: 2018
